FAERS Safety Report 4472652-1 (Version None)
Quarter: 2004Q4

REPORT INFORMATION
  Report Type: 
  Country: None (occurrence: None)
  Receive Date: 20041012
  Receipt Date: 20041012
  Transmission Date: 20050328
  Serious: Yes (Hospitalization)
  Sender: FDA-Public Use
  Company Number: None

PATIENT
  Sex: Female
  Weight: 94.3482 kg

DRUGS (1)
  1. TOPOTECAN 0.6 MG/M2 [Suspect]
     Indication: CERVIX CARCINOMA RECURRENT
     Dosage: 1.2 MG PO X 5 IV
     Route: 042
     Dates: start: 20040920, end: 20040921

REACTIONS (3)
  - ABSCESS [None]
  - COLOSTOMY [None]
  - PYREXIA [None]
